FAERS Safety Report 6242677-4 (Version None)
Quarter: 2009Q2

REPORT INFORMATION
  Report Type: 
  Country: None (occurrence: None)
  Receive Date: 20090624
  Receipt Date: 20090613
  Transmission Date: 20091009
  Serious: Yes (Other)
  Sender: FDA-Public Use
  Company Number: PHHY2009JP23828

PATIENT

DRUGS (2)
  1. CYCLOSPORINE [Suspect]
     Indication: INTERSTITIAL LUNG DISEASE
     Route: 048
  2. STEROIDS NOS [Concomitant]
     Indication: INTERSTITIAL LUNG DISEASE

REACTIONS (1)
  - ILEUS [None]
